FAERS Safety Report 5067061-0 (Version None)
Quarter: 2006Q3

REPORT INFORMATION
  Report Type: 
  Country: None (occurrence: None)
  Receive Date: 20060801
  Receipt Date: 20060323
  Transmission Date: 20061208
  Serious: Yes (Other)
  Sender: FDA-Public Use
  Company Number: US-BAYER-200611972BWH

PATIENT
  Age: 67 Year
  Sex: Male
  Weight: 110 kg

DRUGS (19)
  1. NEXAVAR [Suspect]
     Indication: RENAL CELL CARCINOMA STAGE UNSPECIFIED
     Dosage: TOTAL DAILY DOSE: 800 MG  UNIT DOSE: 200 MG
     Route: 048
     Dates: start: 20060124, end: 20060227
  2. NEXAVAR [Suspect]
     Dosage: TOTAL DAILY DOSE: 400 MG  UNIT DOSE: 200 MG
     Route: 048
     Dates: start: 20060321
  3. METOPROLOL [Concomitant]
  4. CALCITIPROL [Concomitant]
  5. PLAVIX [Concomitant]
  6. LOVASTATIN [Concomitant]
  7. INSULIN [Concomitant]
     Dates: end: 20060207
  8. INSULIN [Concomitant]
     Dates: start: 20060208, end: 20060208
  9. INSULIN [Concomitant]
     Dates: start: 20060209
  10. INSULIN [Concomitant]
     Dates: start: 20060210
  11. INSULIN [Concomitant]
     Dates: end: 20060209
  12. LASIX [Concomitant]
  13. LISINOPRIL [Concomitant]
  14. NITROSTAT [Concomitant]
  15. NIFEDIPINE [Concomitant]
  16. IRON [Concomitant]
  17. TESTOSTERONE [Concomitant]
  18. LANTUS [Concomitant]
     Dates: start: 20060212
  19. LANTUS [Concomitant]
     Dates: end: 20060211

REACTIONS (13)
  - BLOOD GLUCOSE DECREASED [None]
  - BLOOD GLUCOSE INCREASED [None]
  - BLOOD PRESSURE INCREASED [None]
  - DIARRHOEA [None]
  - DRY MOUTH [None]
  - EYE IRRITATION [None]
  - FATIGUE [None]
  - HYPERGLYCAEMIA [None]
  - MUSCLE SPASMS [None]
  - RASH GENERALISED [None]
  - STOMATITIS [None]
  - TEMPERATURE INTOLERANCE [None]
  - URTICARIA [None]
